FAERS Safety Report 11570286 (Version 1)
Quarter: 2015Q3

REPORT INFORMATION
  Report Type: Spontaneous
  Country: US (occurrence: None)
  Receive Date: 20150928
  Receipt Date: 20150928
  Transmission Date: 20151125
  Serious: No
  Sender: FDA-Public Use
  Company Number: None

PATIENT
  Age: 68 Year
  Sex: Male
  Weight: 136.08 kg

DRUGS (3)
  1. DAILY MULTIVITAMIN [Concomitant]
     Active Substance: VITAMINS
  2. PENNSAID [Suspect]
     Active Substance: DICLOFENAC SODIUM
     Indication: EXOSTOSIS
     Dosage: PUMPS; APPLIED TO SURFACE, USUALLY THE SKIN
     Dates: start: 20150905, end: 20150914
  3. EXTRA VITAMIN D [Concomitant]

REACTIONS (3)
  - Application site erythema [None]
  - Application site dryness [None]
  - Application site exfoliation [None]

NARRATIVE: CASE EVENT DATE: 20150914
